FAERS Safety Report 18867073 (Version 3)
Quarter: 2021Q4

REPORT INFORMATION
  Report Type: Spontaneous
  Country: US (occurrence: US)
  Receive Date: 20210208
  Receipt Date: 20211210
  Transmission Date: 20220303
  Serious: No
  Sender: FDA-Public Use
  Company Number: US-TEVA-2021-US-1875944

PATIENT
  Age: 71 Year
  Sex: Male

DRUGS (6)
  1. OXYCODONE [Suspect]
     Active Substance: OXYCODONE
     Indication: Sciatica
     Dosage: OXYCODONE 10MG 1MG 1 FOUR TIMES DAY AS NEEDED
     Route: 065
     Dates: start: 2021
  2. GABAPENTIN [Suspect]
     Active Substance: GABAPENTIN
     Dosage: 600 MILLIGRAM DAILY; 100MG 2 THREE TIMES A DAY
     Route: 065
     Dates: start: 2021
  3. PREDNISONE [Suspect]
     Active Substance: PREDNISONE
     Dosage: PREDNISONE 6 PACK
     Route: 065
     Dates: start: 2021
  4. CYCLOBENZAPRINE [Suspect]
     Active Substance: CYCLOBENZAPRINE
     Indication: Sciatica
     Dosage: 10MG 1 EVERY 8HRS
     Dates: start: 2021
  5. LEVOTHYROXINE [Concomitant]
     Active Substance: LEVOTHYROXINE
     Dates: start: 2021
  6. LOSARTAN [Concomitant]
     Active Substance: LOSARTAN
     Dosage: 50 MILLIGRAM DAILY;
     Dates: start: 2021

REACTIONS (1)
  - Drug ineffective [Unknown]
